FAERS Safety Report 4931348-X (Version None)
Quarter: 2006Q1

REPORT INFORMATION
  Report Type: 
  Country: None (occurrence: None)
  Receive Date: 20060228
  Receipt Date: 20060214
  Transmission Date: 20060701
  Serious: Yes (Hospitalization)
  Sender: FDA-Public Use
  Company Number: 222124

PATIENT
  Age: 68 Year
  Sex: Male
  Weight: 71.7 kg

DRUGS (12)
  1. AVASTIN [Suspect]
     Indication: NON-SMALL CELL LUNG CANCER
     Dosage: 15 MG/KG, Q3W, INTRAVENOUS
     Route: 042
     Dates: start: 20051207, end: 20060105
  2. CARBOPLATIN [Suspect]
     Indication: NON-SMALL CELL LUNG CANCER
     Dosage: 6 AUC, Q3W, INTRAVENOUS
     Route: 042
     Dates: start: 20051207, end: 20060126
  3. DOCETAXEL (DOCETAXEL) [Suspect]
     Indication: NON-SMALL CELL LUNG CANCER
     Dosage: 75 MG/KG, Q3W, INTRAVENOUS
     Route: 042
  4. PROZAC [Concomitant]
  5. RINOL (DRONABINOL) [Concomitant]
  6. COGENTIN [Concomitant]
  7. IBUPROFEN [Concomitant]
  8. ADVAIR DISKUS 100/50 [Concomitant]
  9. ALBUTEROL INHALER (ALBUTEROL/ALBUTEROL SULFATE) [Concomitant]
  10. TAGAMET [Concomitant]
  11. AZMACORT [Concomitant]
  12. COMPAZINE [Concomitant]

REACTIONS (14)
  - ASTHENIA [None]
  - DIZZINESS [None]
  - FAILURE TO THRIVE [None]
  - FALL [None]
  - HICCUPS [None]
  - JOINT INJURY [None]
  - LIMB INJURY [None]
  - ORAL INTAKE REDUCED [None]
  - PAIN [None]
  - PANCYTOPENIA [None]
  - RIB FRACTURE [None]
  - SYNCOPE [None]
  - VENTRICULAR EXTRASYSTOLES [None]
  - VOMITING [None]
